FAERS Safety Report 9613348 (Version 1)
Quarter: 2013Q4

REPORT INFORMATION
  Report Type: Spontaneous
  Country: CA (occurrence: CA)
  Receive Date: 20131010
  Receipt Date: 20131010
  Transmission Date: 20140711
  Serious: No
  Sender: FDA-Public Use
  Company Number: CA-MERCK-1310CAN004818

PATIENT
  Sex: Female

DRUGS (1)
  1. COSOPT [Suspect]
     Indication: INTRAOCULAR PRESSURE TEST
     Dosage: UNK
     Route: 065
     Dates: start: 201305

REACTIONS (4)
  - Cataract operation [Unknown]
  - Eyelid margin crusting [Unknown]
  - Eyelid pain [Unknown]
  - Eyelid irritation [Unknown]
